FAERS Safety Report 7388967-3 (Version None)
Quarter: 2011Q2

REPORT INFORMATION
  Report Type: 
  Country: None (occurrence: None)
  Receive Date: 20110401
  Receipt Date: 20110328
  Transmission Date: 20111010
  Serious: Yes (Death, Hospitalization)
  Sender: FDA-Public Use
  Company Number: JP-ABBOTT-10P-087-0690539-00

PATIENT
  Sex: Female
  Weight: 43 kg

DRUGS (9)
  1. MIZORIBINE [Concomitant]
  2. STEROID [Suspect]
     Indication: PRODUCT USED FOR UNKNOWN INDICATION
     Dosage: 2 MG
  3. RABEPRAZOLE SODIUM [Concomitant]
     Indication: PRODUCT USED FOR UNKNOWN INDICATION
  4. BUCILLAMINE [Concomitant]
     Indication: PRODUCT USED FOR UNKNOWN INDICATION
  5. HUMIRA [Suspect]
     Indication: RHEUMATOID ARTHRITIS
     Route: 058
     Dates: start: 20100311, end: 20100909
  6. MIZORIBINE [Suspect]
     Indication: PRODUCT USED FOR UNKNOWN INDICATION
  7. ALENDRONATE SODIUM [Concomitant]
     Indication: PRODUCT USED FOR UNKNOWN INDICATION
  8. PREDNISOLONE [Concomitant]
     Indication: PRODUCT USED FOR UNKNOWN INDICATION
  9. SALAZOSULFAPYRIDINE [Concomitant]
     Indication: PRODUCT USED FOR UNKNOWN INDICATION

REACTIONS (12)
  - GENERAL PHYSICAL HEALTH DETERIORATION [None]
  - ENCEPHALOPATHY [None]
  - LYMPHOMA [None]
  - MALAISE [None]
  - PNEUMONIA ASPIRATION [None]
  - ELECTROLYTE IMBALANCE [None]
  - UPPER LIMB FRACTURE [None]
  - DIZZINESS [None]
  - CELL MARKER INCREASED [None]
  - BLOOD BETA-D-GLUCAN INCREASED [None]
  - PNEUMOCYSTIS JIROVECI PNEUMONIA [None]
  - COMPUTERISED TOMOGRAM ABDOMEN ABNORMAL [None]
